FAERS Safety Report 13303848 (Version 1)
Quarter: 2017Q1

REPORT INFORMATION
  Report Type: Spontaneous
  Country: CA (occurrence: CA)
  Receive Date: 20170307
  Receipt Date: 20170307
  Transmission Date: 20170428
  Serious: Yes (Disabling)
  Sender: FDA-Public Use
  Company Number: CA-TEVA-747182ACC

PATIENT
  Age: 51 Year
  Sex: Female
  Weight: 68.1 kg

DRUGS (1)
  1. TRAZODONE [Suspect]
     Active Substance: TRAZODONE HYDROCHLORIDE
     Indication: GENERALISED ANXIETY DISORDER

REACTIONS (3)
  - Diplopia [Not Recovered/Not Resolved]
  - Eye pain [Not Recovered/Not Resolved]
  - Migraine [Not Recovered/Not Resolved]
